FAERS Safety Report 9437087 (Version 1)
Quarter: 2013Q3

REPORT INFORMATION
  Report Type: Spontaneous
  Country: BR (occurrence: BR)
  Receive Date: 20130802
  Receipt Date: 20130802
  Transmission Date: 20140515
  Serious: Yes (Hospitalization)
  Sender: FDA-Public Use
  Company Number: BR-PFIZER INC-2013223599

PATIENT
  Age: 77 Year
  Sex: Male

DRUGS (7)
  1. LIPITOR [Suspect]
     Dosage: UNK
  2. APRESOLINA [Concomitant]
     Dosage: UNK
  3. CLOPIDOGREL [Concomitant]
     Dosage: UNK
  4. MONOCORDIL [Concomitant]
     Dosage: UNK
  5. PANTOCAL [Concomitant]
     Dosage: UNK
  6. SELOZOK [Concomitant]
     Dosage: UNK
  7. SOMALGIN [Concomitant]
     Dosage: UNK

REACTIONS (1)
  - Cerebrovascular accident [Unknown]
